FAERS Safety Report 6739554-9 (Version None)
Quarter: 2010Q2

REPORT INFORMATION
  Report Type: 
  Country: None (occurrence: None)
  Receive Date: 20100525
  Receipt Date: 20100517
  Transmission Date: 20101027
  Serious: Yes (Other)
  Sender: FDA-Public Use
  Company Number: CN-MPIJNJ-2010-02659

PATIENT

DRUGS (2)
  1. VELCADE [Suspect]
     Indication: MULTIPLE MYELOMA
     Dosage: 2.0 MG, UNK
     Route: 042
  2. CEFMINOX SODIUM [Concomitant]
     Indication: LUNG INFECTION
     Dosage: UNK
     Dates: start: 20100510

REACTIONS (2)
  - CONVULSION [None]
  - PULMONARY TUBERCULOSIS [None]
